FAERS Safety Report 22192188 (Version 1)
Quarter: 2023Q2

REPORT INFORMATION
  Report Type: Spontaneous
  Country: US (occurrence: US)
  Receive Date: 20230410
  Receipt Date: 20230410
  Transmission Date: 20230722
  Serious: No
  Sender: FDA-Public Use
  Company Number: US-FreseniusKabi-FK202304154

PATIENT

DRUGS (1)
  1. HEPARIN SODIUM IN DEXTROSE [Suspect]
     Active Substance: HEPARIN SODIUM
     Indication: Product used for unknown indication
     Dosage: HEPARIN 25000MG/500ML BAGS?CONTINUES INFUSION
     Route: 042
     Dates: start: 202303, end: 202303

REACTIONS (1)
  - Therapeutic product effect decreased [None]

NARRATIVE: CASE EVENT DATE: 20230301
